FAERS Safety Report 6345462-8 (Version None)
Quarter: 2009Q3

REPORT INFORMATION
  Report Type: 
  Country: None (occurrence: None)
  Receive Date: 20090909
  Receipt Date: 20090903
  Transmission Date: 20100115
  Serious: Yes (Death, Hospitalization)
  Sender: FDA-Public Use
  Company Number: US-BRISTOL-MYERS SQUIBB COMPANY-14743751

PATIENT
  Age: 84 Year
  Sex: Male
  Weight: 71 kg

DRUGS (6)
  1. SPRYCEL [Suspect]
     Indication: HEPATIC NEOPLASM MALIGNANT
     Dosage: 100MG PO BID
     Route: 048
     Dates: start: 20080403, end: 20090421
  2. MEGACE [Suspect]
  3. AVODART [Concomitant]
  4. BENAZEPRIL HYDROCHLORIDE [Concomitant]
  5. FLOMAX [Concomitant]
  6. VICODIN [Concomitant]

REACTIONS (1)
  - CARDIO-RESPIRATORY ARREST [None]
